FAERS Safety Report 7764020-1 (Version None)
Quarter: 2011Q3

REPORT INFORMATION
  Report Type: 
  Country: None (occurrence: None)
  Receive Date: 20110921
  Receipt Date: 20110916
  Transmission Date: 20111222
  Serious: No
  Sender: FDA-Public Use
  Company Number: US-PFIZER INC-2011173721

PATIENT
  Sex: Female
  Weight: 48.526 kg

DRUGS (2)
  1. PENICILLIN [Suspect]
     Indication: TOOTH INFECTION
     Dosage: 4 MG, DAILY
     Dates: start: 20110727
  2. TOVIAZ [Suspect]
     Indication: HYPERTONIC BLADDER
     Dosage: 4 MG, DAILY
     Route: 048
     Dates: start: 20110729, end: 20110819

REACTIONS (1)
  - EAR DISCOMFORT [None]
